FAERS Safety Report 9264760 (Version 1)
Quarter: 2013Q2

REPORT INFORMATION
  Report Type: Spontaneous
  Country: US (occurrence: None)
  Receive Date: 20130429
  Receipt Date: 20130429
  Transmission Date: 20140414
  Serious: No
  Sender: FDA-Public Use
  Company Number: None

PATIENT
  Age: 36 Year
  Sex: Female
  Weight: 66.23 kg

DRUGS (1)
  1. ACTHAR [Suspect]
     Indication: NEPHROTIC SYNDROME
     Dosage: 80 UNITS
     Route: 058
     Dates: start: 20130312

REACTIONS (1)
  - Alopecia [None]
